FAERS Safety Report 9676246 (Version 1)
Quarter: 2013Q4

REPORT INFORMATION
  Report Type: Spontaneous
  Country: US (occurrence: None)
  Receive Date: 20131105
  Receipt Date: 20131105
  Transmission Date: 20140711
  Serious: Yes (Other)
  Sender: FDA-Public Use
  Company Number: 2013P1020546

PATIENT
  Age: 49 Year
  Sex: Male
  Weight: 74.84 kg

DRUGS (8)
  1. ATIVAN [Suspect]
     Indication: ALCOHOL DETOXIFICATION
     Route: 042
     Dates: start: 20131018
  2. LIBRIUM [Suspect]
     Indication: ALCOHOL DETOXIFICATION
     Route: 042
     Dates: start: 20131018
  3. SEROQUEL [Suspect]
     Indication: ALCOHOL DETOXIFICATION
     Route: 042
     Dates: start: 20131018, end: 201310
  4. VALIUM [Suspect]
     Indication: ALCOHOL DETOXIFICATION
     Route: 048
     Dates: start: 20131018
  5. ATIVAN [Concomitant]
  6. ENALAPRIL [Concomitant]
  7. AMBIEN [Concomitant]
  8. UNSPECIFIED ALLERGY MEDICATION [Concomitant]

REACTIONS (4)
  - Asthenia [None]
  - Overdose [None]
  - Ear pain [None]
  - Hallucination [None]
